FAERS Safety Report 4705643-3 (Version None)
Quarter: 2005Q2

REPORT INFORMATION
  Report Type: 
  Country: None (occurrence: None)
  Receive Date: 20050628
  Receipt Date: 20050610
  Transmission Date: 20051028
  Serious: Yes (Death, Hospitalization, Other)
  Sender: FDA-Public Use
  Company Number: DE_050515841

PATIENT
  Age: 75 Year
  Sex: Female

DRUGS (4)
  1. GEMZAR [Suspect]
     Indication: PANCREATIC CARCINOMA
     Dosage: 1000 MG/M2 DAY
  2. ENALAPRIL MALEATE [Concomitant]
  3. DIURETICS [Concomitant]
  4. ANTICOAGULANT CIT PHOS DEXADENINE [Concomitant]

REACTIONS (12)
  - ANAL HAEMORRHAGE [None]
  - CARDIAC FAILURE [None]
  - DILATATION VENTRICULAR [None]
  - DYSPNOEA EXERTIONAL [None]
  - FALL [None]
  - LUNG DISORDER [None]
  - OEDEMA PERIPHERAL [None]
  - PNEUMONITIS [None]
  - PULMONARY CONGESTION [None]
  - PULMONARY EMBOLISM [None]
  - RENAL FAILURE [None]
  - RESPIRATORY FAILURE [None]
